FAERS Safety Report 21481578 (Version 1)
Quarter: 2022Q4

REPORT INFORMATION
  Report Type: Spontaneous
  Country: BR (occurrence: BR)
  Receive Date: 20221020
  Receipt Date: 20221020
  Transmission Date: 20230113
  Serious: Yes (Other)
  Sender: FDA-Public Use
  Company Number: BR-SUN PHARMACEUTICAL INDUSTRIES LTD-2022R1-359160

PATIENT
  Age: 31 Year
  Sex: Female

DRUGS (4)
  1. DEXAMETHASONE [Suspect]
     Active Substance: DEXAMETHASONE
     Indication: Atrioventricular block second degree
     Dosage: 4 MILLIGRAM, DAILY
     Route: 065
  2. DEXAMETHASONE [Suspect]
     Active Substance: DEXAMETHASONE
     Dosage: 8 MILLIGRAM, DAILY
     Route: 065
  3. ALBUTEROL [Suspect]
     Active Substance: ALBUTEROL
     Indication: Atrioventricular block second degree
     Dosage: 6 MILLIGRAM, DAILY
     Route: 048
  4. TERBUTALINE [Suspect]
     Active Substance: TERBUTALINE
     Indication: Atrioventricular block second degree
     Dosage: 10 MILLIGRAM, DAILY
     Route: 065

REACTIONS (3)
  - Amniorrhexis [Unknown]
  - Exposure during pregnancy [Unknown]
  - Premature delivery [Unknown]
